FAERS Safety Report 16879506 (Version 1)
Quarter: 2019Q4

REPORT INFORMATION
  Report Type: Spontaneous
  Country: KP (occurrence: KP)
  Receive Date: 20191003
  Receipt Date: 20191003
  Transmission Date: 20200122
  Serious: Yes (Death)
  Sender: FDA-Public Use
  Company Number: PHHY2019KP227697

PATIENT
  Age: 43 Year
  Sex: Male

DRUGS (5)
  1. ARGATROBAN. [Suspect]
     Active Substance: ARGATROBAN
     Dosage: 1000 UG, UNK
     Route: 065
     Dates: start: 20190906, end: 20190906
  2. ARGATROBAN. [Suspect]
     Active Substance: ARGATROBAN
     Indication: HEPARIN-INDUCED THROMBOCYTOPENIA
     Dosage: 37 UG, UNK
     Route: 065
     Dates: start: 20190906, end: 20190906
  3. ARGATROBAN. [Suspect]
     Active Substance: ARGATROBAN
     Dosage: 74 UG, UNK
     Route: 065
     Dates: start: 20190906, end: 20190906
  4. ARGATROBAN. [Suspect]
     Active Substance: ARGATROBAN
     Dosage: 300 UG, UNK
     Route: 065
     Dates: start: 20190906, end: 20190906
  5. ARGATROBAN. [Suspect]
     Active Substance: ARGATROBAN
     Dosage: 200 UG, UNK
     Route: 065
     Dates: start: 20190906, end: 20190906

REACTIONS (1)
  - Haemorrhage [Fatal]
